FAERS Safety Report 10404935 (Version 1)
Quarter: 2014Q3

REPORT INFORMATION
  Report Type: Spontaneous
  Country: US (occurrence: US)
  Receive Date: 20140825
  Receipt Date: 20140825
  Transmission Date: 20150326
  Serious: Yes (Hospitalization)
  Sender: FDA-Public Use
  Company Number: US-AMGEN-USASP2014064099

PATIENT
  Age: 53 Year
  Sex: Female

DRUGS (13)
  1. DECADRON [Concomitant]
     Active Substance: DEXAMETHASONE
     Dosage: 20 MG, UNK
     Route: 042
  2. NEUPOGEN [Suspect]
     Active Substance: FILGRASTIM
     Indication: PRODUCT USED FOR UNKNOWN INDICATION
     Dosage: UNK
     Route: 065
  3. ADRIAMYCIN [Concomitant]
     Active Substance: DOXORUBICIN HYDROCHLORIDE
     Dosage: 94 MG, UNK
     Route: 042
  4. EMEND [Concomitant]
     Active Substance: APREPITANT
     Dosage: 150 MG, UNK
     Route: 042
  5. VICODIN [Concomitant]
     Active Substance: ACETAMINOPHEN\HYDROCODONE BITARTRATE
     Dosage: UNK UNK, PRN
  6. BENADRYL [Concomitant]
     Active Substance: DIPHENHYDRAMINE HYDROCHLORIDE
     Dosage: 50 MG, UNK
     Route: 042
  7. VINCRISTINE [Concomitant]
     Active Substance: VINCRISTINE
     Dosage: 2 MG, UNK
     Route: 042
  8. TYLENOL [Concomitant]
     Active Substance: ACETAMINOPHEN
     Dosage: 500 MG, UNK
     Route: 048
  9. RITUXAN [Suspect]
     Active Substance: RITUXIMAB
     Indication: LYMPHOMA
     Dosage: 700 MG, UNK
     Route: 042
     Dates: start: 20110713
  10. PREDNISONE. [Concomitant]
     Active Substance: PREDNISONE
     Dosage: UNK
  11. ZOFRAN                             /00955301/ [Concomitant]
     Active Substance: ONDANSETRON HYDROCHLORIDE
     Dosage: 12 MG, UNK
     Route: 042
  12. CYTOXAN [Concomitant]
     Active Substance: CYCLOPHOSPHAMIDE
     Dosage: 1400 MG, UNK
     Route: 042
  13. TYLENOL [Concomitant]
     Active Substance: ACETAMINOPHEN
     Dosage: 650 MG, UNK
     Route: 048

REACTIONS (17)
  - Fatigue [Unknown]
  - Bone pain [Unknown]
  - Dehydration [Unknown]
  - Neutropenia [Unknown]
  - Tearfulness [Unknown]
  - Pain [Unknown]
  - Cough [Unknown]
  - Urinary incontinence [Unknown]
  - Abdominal pain lower [Unknown]
  - Alopecia [Unknown]
  - Rash [Unknown]
  - Vomiting [Unknown]
  - Nausea [Unknown]
  - Burning sensation [Unknown]
  - Anxiety [Unknown]
  - Neuropathy peripheral [Unknown]
  - Erythema [Unknown]

NARRATIVE: CASE EVENT DATE: 20111013
